FAERS Safety Report 14372013 (Version 1)
Quarter: 2018Q1

REPORT INFORMATION
  Report Type: Report from Study
  Country: US (occurrence: US)
  Receive Date: 20180110
  Receipt Date: 20180110
  Transmission Date: 20180509
  Serious: Yes (Other)
  Sender: FDA-Public Use
  Company Number: US-JNJFOC-20180109441

PATIENT
  Sex: Female

DRUGS (23)
  1. ALBUTEROL. [Concomitant]
     Active Substance: ALBUTEROL
  2. LEXAPRO [Concomitant]
     Active Substance: ESCITALOPRAM OXALATE
  3. VITAMIN D [Concomitant]
     Active Substance: CHOLECALCIFEROL
  4. CYCLOSPORINE. [Concomitant]
     Active Substance: CYCLOSPORINE
  5. ROBITUSSIN (GUAIFENESIN) [Concomitant]
     Active Substance: GUAIFENESIN
  6. NORTRIPTYLINE [Concomitant]
     Active Substance: NORTRIPTYLINE
  7. TACROLIMUS. [Concomitant]
     Active Substance: TACROLIMUS
  8. ACYCLOVIR. [Concomitant]
     Active Substance: ACYCLOVIR
  9. LANTUS [Concomitant]
     Active Substance: INSULIN GLARGINE
  10. PREDNISONE. [Concomitant]
     Active Substance: PREDNISONE
  11. TOPIRAMATE. [Concomitant]
     Active Substance: TOPIRAMATE
  12. ASCORBIC ACID. [Concomitant]
     Active Substance: ASCORBIC ACID
  13. HOMATROPINE [Concomitant]
     Active Substance: HOMATROPINE\HOMATROPINE HYDROBROMIDE
  14. SINGULAIR [Concomitant]
     Active Substance: MONTELUKAST SODIUM
  15. BECLOMETHASONE [Concomitant]
     Active Substance: BECLOMETHASONE
  16. OXYCODONE [Concomitant]
     Active Substance: OXYCODONE
  17. IMBRUVICA [Suspect]
     Active Substance: IBRUTINIB
     Indication: GRAFT VERSUS HOST DISEASE
     Route: 048
     Dates: start: 20170926, end: 2017
  18. HUMULIN NOS [Concomitant]
     Active Substance: INSULIN HUMAN
  19. SUMATRIPTAN. [Concomitant]
     Active Substance: SUMATRIPTAN
  20. TRIAMCINOLONE [Concomitant]
     Active Substance: TRIAMCINOLONE
  21. FLUTICASONE. [Concomitant]
     Active Substance: FLUTICASONE
  22. MAGNESIUM [Concomitant]
     Active Substance: MAGNESIUM
  23. PROTONIX [Concomitant]
     Active Substance: PANTOPRAZOLE SODIUM

REACTIONS (4)
  - Deafness [Unknown]
  - Sinus congestion [Unknown]
  - Arthralgia [Unknown]
  - Headache [Unknown]

NARRATIVE: CASE EVENT DATE: 2017
